FAERS Safety Report 14642063 (Version 1)
Quarter: 2018Q1

REPORT INFORMATION
  Report Type: Spontaneous
  Country: TH (occurrence: TH)
  Receive Date: 20180315
  Receipt Date: 20180315
  Transmission Date: 20180509
  Serious: Yes (Death, Other)
  Sender: FDA-Public Use
  Company Number: TH-SA-2017SA151261

PATIENT
  Age: 68 Year
  Sex: Male

DRUGS (1)
  1. THYMOGLOBULINE [Suspect]
     Active Substance: LAPINE T-LYMPHOCYTE IMMUNE GLOBULIN
     Indication: APLASTIC ANAEMIA
     Route: 042
     Dates: start: 20150106, end: 20150109

REACTIONS (13)
  - Chills [Recovered/Resolved]
  - Respiratory failure [Unknown]
  - Depressed level of consciousness [Unknown]
  - Sepsis [Unknown]
  - Platelet count decreased [Unknown]
  - Blood pressure decreased [Unknown]
  - Escherichia sepsis [Fatal]
  - Atelectasis [Unknown]
  - Headache [Recovered/Resolved]
  - Wheezing [Unknown]
  - Haemorrhage [Unknown]
  - Febrile neutropenia [Fatal]
  - Hypertension [Recovered/Resolved]

NARRATIVE: CASE EVENT DATE: 201501
